FAERS Safety Report 21175303 (Version 2)
Quarter: 2025Q2

REPORT INFORMATION
  Report Type: Report from Study
  Country: DE (occurrence: DE)
  Receive Date: 20220805
  Receipt Date: 20250417
  Transmission Date: 20250716
  Serious: Yes (Hospitalization, Other)
  Sender: ABBVIE
  Company Number: DE-ABBVIE-22K-062-4492593-00

PATIENT
  Age: 69 Year
  Sex: Female

DRUGS (3)
  1. RINVOQ [Suspect]
     Active Substance: UPADACITINIB
     Indication: Rheumatoid arthritis
     Route: 048
     Dates: start: 202002, end: 202006
  2. HULIO [Concomitant]
     Active Substance: ADALIMUMAB-FKJP
     Indication: Product used for unknown indication
     Dates: start: 202006, end: 202101
  3. SULFASALAZINE [Concomitant]
     Active Substance: SULFASALAZINE
     Indication: Product used for unknown indication

REACTIONS (2)
  - Pancreatic neuroendocrine tumour [Unknown]
  - Heart valve operation [Unknown]

NARRATIVE: CASE EVENT DATE: 20210716
